FAERS Safety Report 24775955 (Version 2)
Quarter: 2025Q1

REPORT INFORMATION
  Report Type: Spontaneous
  Country: US (occurrence: US)
  Receive Date: 20241226
  Receipt Date: 20250107
  Transmission Date: 20250409
  Serious: Yes (Other)
  Sender: TEVA
  Company Number: US-TEVA-VS-3277266

PATIENT
  Age: 57 Year
  Sex: Female

DRUGS (12)
  1. DUTASTERIDE [Suspect]
     Active Substance: DUTASTERIDE
     Indication: Hidradenitis
     Route: 065
  2. SILVER NITRATE [Concomitant]
     Active Substance: SILVER NITRATE
     Indication: Hidradenitis
     Route: 065
  3. MINOCYCLINE [Concomitant]
     Active Substance: MINOCYCLINE HYDROCHLORIDE
     Indication: Hidradenitis
     Route: 065
  4. TRIAMCINOLONE [Concomitant]
     Active Substance: TRIAMCINOLONE
     Indication: Hidradenitis
     Route: 026
  5. DAPSONE [Suspect]
     Active Substance: DAPSONE
     Indication: Hidradenitis
     Route: 048
  6. MEROPENEM [Suspect]
     Active Substance: MEROPENEM
     Indication: Hidradenitis
     Route: 042
     Dates: start: 201308
  7. LINEZOLID [Suspect]
     Active Substance: LINEZOLID
     Indication: Hidradenitis
     Route: 042
     Dates: start: 201308
  8. LINEZOLID [Suspect]
     Active Substance: LINEZOLID
     Indication: Hidradenitis
     Route: 065
  9. PREGABALIN [Concomitant]
     Active Substance: PREGABALIN
     Indication: Pain
     Route: 065
  10. DULOXETINE [Concomitant]
     Active Substance: DULOXETINE
     Indication: Pain
     Route: 065
  11. RIFAMPIN [Concomitant]
     Active Substance: RIFAMPIN
     Indication: Hidradenitis
     Route: 048
  12. DAPSONE [Concomitant]
     Active Substance: DAPSONE
     Indication: Hidradenitis
     Route: 061

REACTIONS (3)
  - Diarrhoea [Unknown]
  - Rebound effect [Unknown]
  - Drug ineffective [Unknown]

NARRATIVE: CASE EVENT DATE: 20130901
